FAERS Safety Report 16154180 (Version 1)
Quarter: 2019Q2

REPORT INFORMATION
  Report Type: Spontaneous
  Country: GB (occurrence: GB)
  Receive Date: 20190403
  Receipt Date: 20190403
  Transmission Date: 20190711
  Serious: Yes (Other)
  Sender: FDA-Public Use
  Company Number: GB-TEVA-2019-GB-1032814

PATIENT
  Age: 81 Year
  Sex: Female
  Weight: 60 kg

DRUGS (9)
  1. DERMOL [Concomitant]
     Active Substance: BENZALKONIUM CHLORIDE\CHLORHEXIDINE HYDROCHLORIDE\ISOPROPYL MYRISTATE\PARAFFIN
     Indication: PRURITUS
     Dosage: APPLY AS DIRECTED
     Dates: start: 20160406
  2. CLOTRIMAZOLE. [Concomitant]
     Active Substance: CLOTRIMAZOLE
     Dosage: APPLY 2-3 TIMES/DAY
     Dates: start: 20190304, end: 20190305
  3. OMEPRAZOLE. [Concomitant]
     Active Substance: OMEPRAZOLE
     Dosage: 1 DOSAGE FORMS DAILY;
     Dates: start: 20160406
  4. NITROFURANTOIN. [Suspect]
     Active Substance: NITROFURANTOIN
     Indication: INFECTION
     Dosage: 200 MILLIGRAM DAILY; FOR 7 DAYS
     Dates: start: 20190305
  5. RISEDRONATE SODIUM. [Concomitant]
     Active Substance: RISEDRONATE SODIUM
     Dosage: WITH A GLASS OF WATER
     Dates: start: 20160406
  6. ESTRIOL [Concomitant]
     Active Substance: ESTRIOL
     Dates: start: 20160406
  7. ADCAL (CALCIUM CARBONATE) [Concomitant]
     Active Substance: CALCIUM CARBONATE
     Dosage: 2 DOSAGE FORMS DAILY;
     Dates: start: 20160406
  8. SIMVASTATIN. [Concomitant]
     Active Substance: SIMVASTATIN
     Indication: HYPERCHOLESTEROLAEMIA
     Dosage: 1 DOSAGE FORMS DAILY; AT NIGHT
     Dates: start: 20160406
  9. LEVOTHYROXINE. [Concomitant]
     Active Substance: LEVOTHYROXINE
     Dosage: 1 DOSAGE FORMS DAILY; EACH MORNING BEFORE BREAKFAST
     Dates: start: 20160406

REACTIONS (1)
  - Oedema mouth [Recovered/Resolved]

NARRATIVE: CASE EVENT DATE: 20190306
